FAERS Safety Report 10406673 (Version 3)
Quarter: 2018Q1

REPORT INFORMATION
  Report Type: Spontaneous
  Country: US (occurrence: US)
  Receive Date: 20140825
  Receipt Date: 20180323
  Transmission Date: 20180508
  Serious: No
  Sender: FDA-Public Use
  Company Number: US-PFIZER INC-2014232859

PATIENT
  Age: 62 Year
  Sex: Female
  Weight: 88.89 kg

DRUGS (29)
  1. LEVOXYL [Concomitant]
     Active Substance: LEVOTHYROXINE SODIUM
     Dosage: 250 UG, 1X/DAY (TAKING TWO PILLS OF 125MCG ONE TIME A DAY)
  2. DOXYCYCLINE. [Concomitant]
     Active Substance: DOXYCYCLINE
     Dosage: UNK
  3. ASPIRIN. [Concomitant]
     Active Substance: ASPIRIN
     Dosage: 81 MG, 1X/DAY
  4. CARBIDOPA AND LEVODOPA [Concomitant]
     Active Substance: CARBIDOPA\LEVODOPA
     Dosage: UNK (5X A DAY)
  5. LYRICA [Suspect]
     Active Substance: PREGABALIN
     Dosage: 50 MG, 2X/DAY
     Route: 048
     Dates: start: 20140808, end: 2015
  6. LORAZEPAM. [Concomitant]
     Active Substance: LORAZEPAM
     Dosage: 1 MG, AS NEEDED
  7. LISINOPRIL. [Concomitant]
     Active Substance: LISINOPRIL
     Dosage: UNK
  8. HUMALOG [Concomitant]
     Active Substance: INSULIN LISPRO
     Dosage: 10 IU, UNK ( AT SUPPER)
  9. BABY ASPIRIN [Concomitant]
     Active Substance: ASPIRIN
     Dosage: 81 MG, 1X/DAY
  10. SAW PALMETTO [Concomitant]
     Active Substance: HERBALS\SAW PALMETTO
     Dosage: 450 MG, 1X/DAY
  11. LYRICA [Suspect]
     Active Substance: PREGABALIN
     Dosage: 100 MG, 1X/DAY, START 1 CAPSULE AT BEDTIME FOR 7 DAYS
     Route: 048
  12. HUMALOG [Concomitant]
     Active Substance: INSULIN LISPRO
     Dosage: 8 IU, 3X/DAY
  13. LANTUS [Concomitant]
     Active Substance: INSULIN GLARGINE
     Dosage: 60 IU, 1X/DAY (AT BED TIME)
  14. LYRICA [Suspect]
     Active Substance: PREGABALIN
     Dosage: 100 MG, 2X/DAY (1 CAPSULE THEN 2 (TWO) TIMES DAILY), (THEN UP TO BID)
     Route: 048
  15. LEVOXYL [Concomitant]
     Active Substance: LEVOTHYROXINE SODIUM
     Dosage: 300 MG, UNK
  16. LANTUS [Concomitant]
     Active Substance: INSULIN GLARGINE
     Dosage: 38 IU, AT BED TIME
  17. JANUVIA [Concomitant]
     Active Substance: SITAGLIPTIN PHOSPHATE
     Dosage: 100 MG, 1X/DAY
  18. DULOXETIN [Concomitant]
     Active Substance: DULOXETINE
     Dosage: 60 MG, 2X/DAY
  19. TENSION HEADACHE RELIEVERS [Concomitant]
     Dosage: 500 MG, AS NEEDED
  20. FISH OIL [Concomitant]
     Active Substance: FISH OIL
     Dosage: 1600 MG, 1X/DAY
  21. METFORMIN [Concomitant]
     Active Substance: METFORMIN HYDROCHLORIDE
     Dosage: 1000 MG, 2X/DAY
  22. MELOXICAM. [Concomitant]
     Active Substance: MELOXICAM
     Dosage: UNK
  23. QUETIAPINE FUMARATE. [Concomitant]
     Active Substance: QUETIAPINE FUMARATE
     Dosage: 12.5 MG, 2X/DAY, (25-250)
  24. VITAMIN D2 [Concomitant]
     Active Substance: ERGOCALCIFEROL
     Dosage: 1.25 MG (50000 UNIT), 2X/WEEK
  25. HYDROCODONE [Concomitant]
     Active Substance: HYDROCODONE
     Dosage: 10/325, EVERY SIX HOURS
  26. HUMALOG 70/30 [Concomitant]
     Active Substance: INSULIN HUMAN
     Dosage: 70/30, 2X/DAY
  27. FENOFIBRATE. [Concomitant]
     Active Substance: FENOFIBRATE
     Dosage: UNK
  28. LEVOTHYROXINE. [Concomitant]
     Active Substance: LEVOTHYROXINE
     Dosage: 300 MG, UNK
  29. PIMAVANSERIN [Concomitant]
     Active Substance: PIMAVANSERIN
     Dosage: 17 MG, UNK

REACTIONS (1)
  - Pain [Not Recovered/Not Resolved]

NARRATIVE: CASE EVENT DATE: 201408
